FAERS Safety Report 5130054-9 (Version None)
Quarter: 2006Q4

REPORT INFORMATION
  Report Type: 
  Country: None (occurrence: None)
  Receive Date: 20061013
  Receipt Date: 20061001
  Transmission Date: 20070319
  Serious: Yes (Death)
  Sender: FDA-Public Use
  Company Number: 2006118878

PATIENT
  Age: 75 Year
  Sex: Female
  Weight: 70 kg

DRUGS (4)
  1. SU-011,248 (SUNITINIB MALATE) [Suspect]
     Dosage: 37.5 MG (37.5 MG, 1 IN 1 D), ORAL
     Route: 048
     Dates: start: 20060925, end: 20060929
  2. EFFOX LONG (ISOSORBIDE MONONITRATE) [Concomitant]
  3. MOLSIDOMINA (MOLSIDOMINE) [Concomitant]
  4. TRIMETAZIDINE (TRIMETAZIDINE) [Concomitant]

REACTIONS (1)
  - SHOCK [None]
